FAERS Safety Report 12924094 (Version 2)
Quarter: 2016Q4

REPORT INFORMATION
  Report Type: Report from Study
  Country: KR (occurrence: KR)
  Receive Date: 20161108
  Receipt Date: 20161121
  Transmission Date: 20170207
  Serious: Yes (Other)
  Sender: FDA-Public Use
  Company Number: PHHY2016KR146192

PATIENT
  Age: 57 Year
  Sex: Male

DRUGS (6)
  1. COLONLYTE [Concomitant]
     Indication: PROPHYLAXIS
     Dosage: 4 L, UNK
     Route: 048
     Dates: start: 20130827, end: 20130827
  2. LORAZEPAM. [Concomitant]
     Active Substance: LORAZEPAM
     Indication: PROPHYLAXIS
     Dosage: 2 MG, UNK
     Route: 042
     Dates: start: 20130613, end: 20130613
  3. TASIGNA [Suspect]
     Active Substance: NILOTINIB
     Indication: CHRONIC MYELOID LEUKAEMIA
     Dosage: 600 MG, QD
     Route: 048
     Dates: start: 20121205
  4. CLICOOL [Concomitant]
     Indication: PROPHYLAXIS
     Dosage: 1 DF (EA), UNK
     Route: 048
     Dates: start: 20160519, end: 20160519
  5. PETHIDINE [Concomitant]
     Active Substance: MEPERIDINE
     Indication: PROPHYLAXIS
     Dosage: 50 MG, UNK
     Route: 030
     Dates: start: 20130827, end: 20130827
  6. PETHIDINE [Concomitant]
     Active Substance: MEPERIDINE
     Dosage: 25 MG, UNK
     Route: 042
     Dates: start: 20160519, end: 20160519

REACTIONS (2)
  - Rash [Recovered/Resolved]
  - Epididymitis [Recovering/Resolving]

NARRATIVE: CASE EVENT DATE: 20130227
